FAERS Safety Report 10686347 (Version 3)
Quarter: 2015Q1

REPORT INFORMATION
  Report Type: Spontaneous
  Country: US (occurrence: US)
  Receive Date: 20141231
  Receipt Date: 20150224
  Transmission Date: 20150720
  Serious: No
  Sender: FDA-Public Use
  Company Number: US-PFIZER INC-2014361883

PATIENT
  Age: 83 Year
  Sex: Female

DRUGS (1)
  1. XELJANZ [Suspect]
     Active Substance: TOFACITINIB CITRATE
     Indication: ARTHRITIS
     Dosage: 20 MG, 1X/DAY
     Dates: start: 201405

REACTIONS (9)
  - Tinea pedis [Unknown]
  - Rhinitis [Unknown]
  - Peripheral swelling [Not Recovered/Not Resolved]
  - Skin infection [Not Recovered/Not Resolved]
  - Skin disorder [Not Recovered/Not Resolved]
  - Nasal discomfort [Unknown]
  - Rhinorrhoea [Unknown]
  - Secretion discharge [Recovered/Resolved]
  - Hypoaesthesia [Not Recovered/Not Resolved]

NARRATIVE: CASE EVENT DATE: 201412
